FAERS Safety Report 10006457 (Version 1)
Quarter: 2014Q1

REPORT INFORMATION
  Report Type: Spontaneous
  Country: US (occurrence: None)
  Receive Date: 20140311
  Receipt Date: 20140311
  Transmission Date: 20141002
  Serious: Yes (Hospitalization, Other)
  Sender: FDA-Public Use
  Company Number: COL_15398_2014

PATIENT
  Age: 43 Year
  Sex: Male

DRUGS (2)
  1. ULTRA BRITE BAKING SODA AND PEROXIDE WHITENING TOOTHPASTE [Suspect]
     Indication: PRODUCT USED FOR UNKNOWN INDICATION
     Dosage: (PEA SIZE/BID/ ORAL)
     Route: 048
     Dates: start: 201401, end: 2014
  2. UNSPECIFIED PSYCHIATRIC MEDICATION [Concomitant]

REACTIONS (9)
  - Diabetic coma [None]
  - Atrial fibrillation [None]
  - Chromaturia [None]
  - Liver disorder [None]
  - Cold sweat [None]
  - Laceration [None]
  - Mucous membrane disorder [None]
  - Stomatitis [None]
  - Hyperhidrosis [None]
